FAERS Safety Report 25551380 (Version 1)
Quarter: 2025Q3

REPORT INFORMATION
  Report Type: Report from Study
  Country: US (occurrence: US)
  Receive Date: 20250714
  Receipt Date: 20250714
  Transmission Date: 20251021
  Serious: Yes (Death, Other)
  Sender: PFIZER
  Company Number: US-PFIZER INC-202500140981

PATIENT
  Age: 89 Year
  Sex: Male

DRUGS (37)
  1. TALZENNA [Suspect]
     Active Substance: TALAZOPARIB TOSYLATE
     Dosage: 0.5MG ORALLY ONCE DAILY
     Route: 048
  2. ASPIRIN [Concomitant]
     Active Substance: ASPIRIN
  3. ALLOPURINOL [Concomitant]
     Active Substance: ALLOPURINOL
  4. CLOTRIMAZOLE [Concomitant]
     Active Substance: CLOTRIMAZOLE
  5. ATORVASTATIN [Concomitant]
     Active Substance: ATORVASTATIN
  6. CHLORTHALIDONE [Concomitant]
     Active Substance: CHLORTHALIDONE
  7. COLCHICINE [Concomitant]
     Active Substance: COLCHICINE
  8. COLCRYS [Concomitant]
     Active Substance: COLCHICINE
  9. DESONIDE [Concomitant]
     Active Substance: DESONIDE
  10. ENALAPRIL [Concomitant]
     Active Substance: ENALAPRIL
  11. FIRMAGON [Concomitant]
     Active Substance: DEGARELIX ACETATE
  12. FUROSEMIDE [Concomitant]
     Active Substance: FUROSEMIDE
  13. GENTAMICIN [Concomitant]
     Active Substance: GENTAMICIN
  14. INDOMETHACIN EXTENDED RELEASE [Concomitant]
  15. LEVETIRACETAM [Concomitant]
     Active Substance: LEVETIRACETAM
  16. MECLIZINE [Concomitant]
     Active Substance: MECLIZINE HYDROCHLORIDE
  17. MEGESTROL [Concomitant]
     Active Substance: MEGESTROL
  18. MIRALAX [Concomitant]
     Active Substance: POLYETHYLENE GLYCOL 3350
  19. DEXAMETHASONE\NEOMYCIN\POLYMYXIN B [Concomitant]
     Active Substance: DEXAMETHASONE\NEOMYCIN\POLYMYXIN B
  20. NEVANAC [Concomitant]
     Active Substance: NEPAFENAC
  21. NITROGLYCERIN [Concomitant]
     Active Substance: NITROGLYCERIN
  22. NORCO [Concomitant]
     Active Substance: ACETAMINOPHEN\HYDROCODONE BITARTRATE
  23. NYSTATIN\TRIAMCINOLONE [Concomitant]
     Active Substance: NYSTATIN\TRIAMCINOLONE
  24. NYSTOP [Concomitant]
     Active Substance: NYSTATIN
  25. ONDANSETRON [Concomitant]
     Active Substance: ONDANSETRON
  26. OXYCODONE [Concomitant]
     Active Substance: OXYCODONE
  27. PENTOXIFYLLINE [Concomitant]
     Active Substance: PENTOXIFYLLINE
  28. PLAVIX [Concomitant]
     Active Substance: CLOPIDOGREL BISULFATE
  29. POTASSIUM CHLORIDE EXTENDED RELEASE [Concomitant]
     Active Substance: POTASSIUM CHLORIDE
  30. PREDNISOLONE ACETATE [Concomitant]
     Active Substance: PREDNISOLONE ACETATE
  31. PREDNISONE [Concomitant]
     Active Substance: PREDNISONE
  32. PROCHLORPERAZINE [Concomitant]
     Active Substance: PROCHLORPERAZINE
  33. ROSUVASTATIN [Concomitant]
     Active Substance: ROSUVASTATIN
  34. SPIRONOLACTONE [Concomitant]
     Active Substance: SPIRONOLACTONE
  35. SULINDAC [Concomitant]
     Active Substance: SULINDAC
  36. TAMSULOSIN [Concomitant]
     Active Substance: TAMSULOSIN
  37. TOBRAMYCIN [Concomitant]
     Active Substance: TOBRAMYCIN

REACTIONS (1)
  - Death [Fatal]
